FAERS Safety Report 16040360 (Version 3)
Quarter: 2019Q2

REPORT INFORMATION
  Report Type: Spontaneous
  Country: US (occurrence: US)
  Receive Date: 20190306
  Receipt Date: 20190528
  Transmission Date: 20190711
  Serious: Yes (Other)
  Sender: FDA-Public Use
  Company Number: US-ASTRAZENECA-2018SF26295

PATIENT
  Age: 62 Year
  Sex: Male

DRUGS (35)
  1. FUROSEMIDE. [Concomitant]
     Active Substance: FUROSEMIDE
  2. SIMVASTATIN. [Concomitant]
     Active Substance: SIMVASTATIN
  3. METHYLPREDNISOLONE. [Concomitant]
     Active Substance: METHYLPREDNISOLONE
  4. METOCLOPRAMIDE. [Concomitant]
     Active Substance: METOCLOPRAMIDE
  5. PREVPAC [Concomitant]
     Active Substance: AMOXICILLIN\CLARITHROMYCIN\LANSOPRAZOLE
  6. TRAMADOL. [Concomitant]
     Active Substance: TRAMADOL
  7. NEXIUM [Suspect]
     Active Substance: ESOMEPRAZOLE MAGNESIUM
     Indication: GASTROOESOPHAGEAL REFLUX DISEASE
     Route: 048
     Dates: start: 2001, end: 2008
  8. ALPRAZOLAM. [Concomitant]
     Active Substance: ALPRAZOLAM
  9. ENOXAPARIN [Concomitant]
     Active Substance: ENOXAPARIN
  10. FUROSEMIDE. [Concomitant]
     Active Substance: FUROSEMIDE
  11. NIASPAN [Concomitant]
     Active Substance: NIACIN
  12. LISINOPRIL. [Concomitant]
     Active Substance: LISINOPRIL
  13. NASACORT [Concomitant]
     Active Substance: TRIAMCINOLONE ACETONIDE
  14. PENICILLIN [Concomitant]
     Active Substance: PENICILLIN
  15. TRICOR [Concomitant]
     Active Substance: FENOFIBRATE
  16. AMOXICILLIN. [Concomitant]
     Active Substance: AMOXICILLIN
  17. HYDROCODONE [Concomitant]
     Active Substance: HYDROCODONE
  18. WARFARIN [Concomitant]
     Active Substance: WARFARIN
  19. JANUVIA [Concomitant]
     Active Substance: SITAGLIPTIN PHOSPHATE
  20. CARVEDILOL. [Concomitant]
     Active Substance: CARVEDILOL
  21. PRAVASTATIN. [Concomitant]
     Active Substance: PRAVASTATIN
  22. AMIODARONE [Concomitant]
     Active Substance: AMIODARONE
  23. LOVENOX [Concomitant]
     Active Substance: ENOXAPARIN SODIUM
  24. OXYCODONE [Concomitant]
     Active Substance: OXYCODONE
  25. CARVEDILOL. [Concomitant]
     Active Substance: CARVEDILOL
  26. OMEPRAZOLE. [Suspect]
     Active Substance: OMEPRAZOLE
     Indication: GASTROOESOPHAGEAL REFLUX DISEASE
     Route: 065
     Dates: start: 2008
  27. SPIRONOLACTONE. [Concomitant]
     Active Substance: SPIRONOLACTONE
  28. DIGOXIN. [Concomitant]
     Active Substance: DIGOXIN
  29. DICYCLOMINE [Concomitant]
     Active Substance: DICYCLOMINE HYDROCHLORIDE
  30. CIPROFLOXACIN. [Concomitant]
     Active Substance: CIPROFLOXACIN
  31. PEPCID [Concomitant]
     Active Substance: FAMOTIDINE
  32. AMIODARONE [Concomitant]
     Active Substance: AMIODARONE
  33. ALPRAZOLAM. [Concomitant]
     Active Substance: ALPRAZOLAM
  34. CLINDAMYCIN. [Concomitant]
     Active Substance: CLINDAMYCIN
  35. PRAVASTATIN. [Concomitant]
     Active Substance: PRAVASTATIN

REACTIONS (4)
  - Chronic kidney disease [Not Recovered/Not Resolved]
  - Acute kidney injury [Unknown]
  - Chronic kidney disease-mineral and bone disorder [Unknown]
  - End stage renal disease [Unknown]

NARRATIVE: CASE EVENT DATE: 2018
